FAERS Safety Report 6219599-8 (Version None)
Quarter: 2009Q2

REPORT INFORMATION
  Report Type: 
  Country: None (occurrence: None)
  Receive Date: 20090609
  Receipt Date: 20090605
  Transmission Date: 20091009
  Serious: Yes (Life-Threatening, Hospitalization)
  Sender: FDA-Public Use
  Company Number: JP-JNJFOC-20090506428

PATIENT
  Age: 80 Year
  Sex: Female
  Weight: 34 kg

DRUGS (15)
  1. MICONAZOLE [Suspect]
     Route: 065
  2. MICONAZOLE [Suspect]
     Indication: ORAL CANDIDIASIS
     Route: 065
  3. WARFARIN SODIUM [Interacting]
     Indication: ATRIAL FIBRILLATION
     Route: 048
  4. CALCITRIOL [Concomitant]
  5. FAMOTIDINE [Concomitant]
  6. ALLOPURINOL [Concomitant]
  7. VITAMIN E [Concomitant]
  8. ISOSORBIDE MONONITRATE [Concomitant]
  9. MECOBALAMIN [Concomitant]
  10. APRINDINE HYDROCHLORIDE [Concomitant]
  11. TEPRENONE [Concomitant]
  12. NICORANDIL [Concomitant]
  13. VERAPAMIL HYDROCHLORIDE [Concomitant]
  14. CALCIUM CARBONATE [Concomitant]
  15. DIAZEPAM [Concomitant]

REACTIONS (3)
  - DRUG INTERACTION [None]
  - GASTROINTESTINAL HAEMORRHAGE [None]
  - INTERNATIONAL NORMALISED RATIO INCREASED [None]
